FAERS Safety Report 7966082-5 (Version None)
Quarter: 2011Q4

REPORT INFORMATION
  Report Type: 
  Country: None (occurrence: None)
  Receive Date: 20111208
  Receipt Date: 20111124
  Transmission Date: 20120403
  Serious: Yes (Other)
  Sender: FDA-Public Use
  Company Number: GB-WATSON-2011-11013

PATIENT
  Age: 61 Year
  Sex: Female

DRUGS (16)
  1. BISOPROLOL (UNKNOWN) [Suspect]
     Indication: PRODUCT USED FOR UNKNOWN INDICATION
     Dosage: UNK
     Route: 065
     Dates: start: 20101001, end: 20101006
  2. MEBEVERINE [Concomitant]
     Indication: PRODUCT USED FOR UNKNOWN INDICATION
  3. DILTIAZEM HYDROCHLORIDE [Suspect]
     Indication: PRODUCT USED FOR UNKNOWN INDICATION
     Dosage: 200 MG, DAILY
     Route: 048
     Dates: start: 20101006
  4. INDAPAMIDE [Concomitant]
     Indication: PRODUCT USED FOR UNKNOWN INDICATION
     Dosage: 1.5 MG, UNK
     Route: 065
     Dates: start: 20101001
  5. BENDROFLUMETHIAZIDE [Concomitant]
     Indication: PRODUCT USED FOR UNKNOWN INDICATION
     Dosage: UNK
     Route: 065
     Dates: start: 20110113
  6. RAMIPRIL [Suspect]
     Dosage: 0.75 MG, UNK
     Route: 065
     Dates: start: 20101118
  7. ASPIRIN [Concomitant]
     Indication: PRODUCT USED FOR UNKNOWN INDICATION
     Dosage: 75 MG, DAILY
     Route: 065
     Dates: start: 20101202
  8. SIMVASTATIN [Concomitant]
     Indication: PRODUCT USED FOR UNKNOWN INDICATION
     Dosage: 40 MG, UNK
     Route: 065
     Dates: start: 20100913
  9. RAMIPRIL [Suspect]
     Indication: BLOOD PRESSURE
     Dosage: 2.5 MG, UNK
     Route: 065
     Dates: start: 20101206, end: 20101216
  10. DANDELION [Concomitant]
     Indication: POLYURIA
     Route: 065
  11. DILTIAZEM HCL [Suspect]
     Indication: PRODUCT USED FOR UNKNOWN INDICATION
     Dosage: UNK
     Route: 048
     Dates: start: 20101006, end: 20101104
  12. SOTALOL HCL [Concomitant]
     Indication: PRODUCT USED FOR UNKNOWN INDICATION
  13. DILTIAZEM HYDROCHLORIDE [Suspect]
     Dosage: UNK
     Dates: end: 20101104
  14. CHAPARRAL DANDELION BLEND [Concomitant]
     Indication: PRODUCT USED FOR UNKNOWN INDICATION
  15. HERBAL MEDICATION [Concomitant]
     Indication: MIGRAINE
     Route: 065
  16. LOSARTAN POTASSIUM [Concomitant]
     Indication: PRODUCT USED FOR UNKNOWN INDICATION
     Route: 065

REACTIONS (8)
  - DRUG HYPERSENSITIVITY [None]
  - DIZZINESS [None]
  - HYPOAESTHESIA [None]
  - NAUSEA [None]
  - VISUAL IMPAIRMENT [None]
  - VERTIGO [None]
  - VISION BLURRED [None]
  - BLOOD PRESSURE INCREASED [None]
